FAERS Safety Report 8177712-X (Version None)
Quarter: 2012Q1

REPORT INFORMATION
  Report Type: 
  Country: None (occurrence: None)
  Receive Date: 20120301
  Receipt Date: 20120228
  Transmission Date: 20120608
  Serious: Yes (Life-Threatening, Other)
  Sender: FDA-Public Use
  Company Number: PHHY2012FR017346

PATIENT
  Age: 18 Year
  Sex: Male

DRUGS (2)
  1. CLOZAPINE [Suspect]
     Dates: start: 20060101, end: 20111101
  2. LOXAPINE HCL [Concomitant]
     Dosage: UNK
     Dates: start: 20100101

REACTIONS (4)
  - LEFT VENTRICULAR HYPERTROPHY [None]
  - LOSS OF CONSCIOUSNESS [None]
  - MALAISE [None]
  - CARDIOMYOPATHY [None]
